FAERS Safety Report 19701596 (Version 1)
Quarter: 2021Q3

REPORT INFORMATION
  Report Type: Spontaneous
  Country: CA (occurrence: CA)
  Receive Date: 20210813
  Receipt Date: 20210813
  Transmission Date: 20211014
  Serious: Yes (Hospitalization)
  Sender: FDA-Public Use
  Company Number: CA-PFIZER INC-202101012798

PATIENT
  Age: 79 Year
  Sex: Female
  Weight: 80.73 kg

DRUGS (5)
  1. K?DUR [Concomitant]
     Active Substance: POTASSIUM CHLORIDE
  2. LAX?A?DAY [Concomitant]
     Active Substance: POLYETHYLENE GLYCOL 3350
  3. DULCOLAX (BISACODYL) [Concomitant]
     Active Substance: BISACODYL
  4. GABAPENTIN. [Suspect]
     Active Substance: GABAPENTIN
     Indication: PAIN IN EXTREMITY
     Dosage: 100 MG, 3 EVERY 1 DAYS
     Route: 048
  5. GLYCERIN SUPPOSITORIES [Concomitant]

REACTIONS (4)
  - Off label use [Unknown]
  - Delirium [Recovered/Resolved]
  - Mental disorder [Recovered/Resolved]
  - Urinary retention [Recovered/Resolved]
